FAERS Safety Report 14977129 (Version 2)
Quarter: 2018Q2

REPORT INFORMATION
  Report Type: Spontaneous
  Country: FR (occurrence: FR)
  Receive Date: 20180606
  Receipt Date: 20180628
  Transmission Date: 20180711
  Serious: Yes (Hospitalization, Other)
  Sender: FDA-Public Use
  Company Number: FR-TEVA-2018-FR-900525

PATIENT
  Age: 24 Year
  Sex: Female

DRUGS (1)
  1. LEELOO 0.1 MG / 0.02 MG, COATED TABLET [Suspect]
     Active Substance: ETHINYL ESTRADIOL\LEVONORGESTREL
     Indication: CHEMICAL CONTRACEPTION
     Route: 048
     Dates: end: 20180314

REACTIONS (5)
  - Metrorrhagia [Recovered/Resolved]
  - Pelvic pain [Recovered/Resolved]
  - Pregnancy [Recovered/Resolved]
  - Vomiting [Recovered/Resolved]
  - Drug ineffective [Recovered/Resolved]

NARRATIVE: CASE EVENT DATE: 201801
